FAERS Safety Report 6978946-X (Version None)
Quarter: 2010Q3

REPORT INFORMATION
  Report Type: 
  Country: None (occurrence: None)
  Receive Date: 20100913
  Receipt Date: 20100901
  Transmission Date: 20110219
  Serious: Yes (Other)
  Sender: FDA-Public Use
  Company Number: AU-MERCK-1009USA00221

PATIENT
  Age: 6 Year
  Sex: Female

DRUGS (2)
  1. SINGULAIR [Suspect]
     Indication: EOSINOPHILIC OESOPHAGITIS
     Route: 065
  2. SINGULAIR [Suspect]
     Route: 065

REACTIONS (6)
  - NIGHTMARE [None]
  - OFF LABEL USE [None]
  - PARANOIA [None]
  - PSYCHOTIC DISORDER [None]
  - SLEEP DISORDER [None]
  - SUICIDAL IDEATION [None]
